FAERS Safety Report 19305563 (Version 1)
Quarter: 2021Q2

REPORT INFORMATION
  Report Type: Report from Study
  Country: BE (occurrence: BE)
  Receive Date: 20210526
  Receipt Date: 20210526
  Transmission Date: 20210717
  Serious: Yes (Other)
  Sender: FDA-Public Use
  Company Number: BE-TEVA-2021-BE-1914880

PATIENT
  Sex: Female

DRUGS (4)
  1. HYDROCORTISONE. [Concomitant]
     Active Substance: HYDROCORTISONE
     Indication: PRODUCT USED FOR UNKNOWN INDICATION
     Route: 065
  2. METHOTREXATE. [Suspect]
     Active Substance: METHOTREXATE
     Indication: ACUTE LYMPHOCYTIC LEUKAEMIA
     Dosage: 12 MILLIGRAM DAILY; DOSE/APPLICATION: 12MG; RECEIVED A TOTAL OF 16 APPLICATIONS AS (NUMBER OF APPLIC
     Route: 037
  3. METHOTREXATE. [Suspect]
     Active Substance: METHOTREXATE
     Dosage: DOSE/APPLICATION: 5 G/M2; RECEIVED 4 APPLICATIONS IN INTERVAL PHASE
     Route: 042
  4. ARA?C [Suspect]
     Active Substance: CYTARABINE
     Indication: ACUTE LYMPHOCYTIC LEUKAEMIA
     Dosage: ADMINISTERED WITH IT METHOTREXATE IN ALL PHASES EXCEPT PREPHASE
     Route: 065

REACTIONS (1)
  - Epilepsy [Unknown]
